FAERS Safety Report 5989440-7 (Version None)
Quarter: 2008Q4

REPORT INFORMATION
  Report Type: 
  Country: None (occurrence: None)
  Receive Date: 20081205
  Receipt Date: 20081121
  Transmission Date: 20090506
  Serious: Yes (Hospitalization)
  Sender: FDA-Public Use
  Company Number: KV200800474

PATIENT
  Age: 82 Year
  Sex: Male

DRUGS (1)
  1. ISOSORBIDE MONONITRATE [Suspect]
     Indication: DRUG USE FOR UNKNOWN INDICATION
     Dosage: 30 MG, BID, ORAL
     Route: 048

REACTIONS (1)
  - UNRESPONSIVE TO STIMULI [None]
